FAERS Safety Report 18878900 (Version 2)
Quarter: 2021Q2

REPORT INFORMATION
  Report Type: Spontaneous
  Country: TH (occurrence: TH)
  Receive Date: 20210211
  Receipt Date: 20210402
  Transmission Date: 20210717
  Serious: Yes (Hospitalization, Other)
  Sender: FDA-Public Use
  Company Number: TH-LUPIN PHARMACEUTICALS INC.-2021-01359

PATIENT
  Age: 40 Year
  Sex: Male

DRUGS (17)
  1. SALMETEROL AND FLUTICASONE [Suspect]
     Active Substance: FLUTICASONE PROPIONATE\SALMETEROL XINAFOATE
     Indication: STATUS ASTHMATICUS
     Dosage: 4 DOSAGE FORM, BID
     Route: 055
  2. FENTANYL. [Concomitant]
     Active Substance: FENTANYL
     Indication: SEDATION
     Dosage: 50 MICROGRAM EVERY 1 HR (ON ADMISSION, AT 12H OF ADMISSION AND AT 54H OF ADMISSION, 50 MCG PER HOUR)
     Route: 065
  3. TIOTROPIUM BROMIDE [Concomitant]
     Active Substance: TIOTROPIUM BROMIDE
     Indication: STATUS ASTHMATICUS
     Dosage: 2.5 MICROGRAM, UNK (FOUR INHALATIONS OF TIOTROPIUM BROMIDE SOFT MIST INHALER)
     Route: 055
  4. CISATRACURIUM. [Concomitant]
     Active Substance: CISATRACURIUM
     Indication: PARALYSIS
  5. MIDAZOLAM. [Concomitant]
     Active Substance: MIDAZOLAM
     Indication: SEDATION
     Dosage: 4 MILLIGRAM EVERY 1 HR (ON ADMISSION)
     Route: 065
  6. AZITHROMYCIN ANHYDROUS. [Concomitant]
     Active Substance: AZITHROMYCIN ANHYDROUS
     Indication: EVIDENCE BASED TREATMENT
     Dosage: UNK
     Route: 065
  7. PROPOFOL. [Suspect]
     Active Substance: PROPOFOL
     Indication: PARALYSIS
     Dosage: 100 MILLIGRAM, EVERY 1 HR (AT 12H OF ADMISSION)
     Route: 042
  8. RINGER LACTATED [CALCIUM CHLORIDE\LACTIC ACID, DL?\POTASSIUM CHLORIDE\SODIUM CHLORIDE] [Suspect]
     Active Substance: CALCIUM CHLORIDE\LACTIC ACID, DL-\POTASSIUM CHLORIDE\SODIUM CHLORIDE
     Indication: FLUID REPLACEMENT
     Dosage: 4.5 LITER, UNK (HE WAS INFUSED WITH FOUR AND A HALF LITERS OF RINGER^S?LACTATE [LACTATED RINGER^S SO
     Route: 065
  9. FENTANYL. [Concomitant]
     Active Substance: FENTANYL
     Indication: PARALYSIS
     Dosage: 80 MICROGRAM, EVERY 1 HR (AT 6H, 24H, 32H AND 48H OF ADMISSION, 80 MCG PER HOUR)
     Route: 065
  10. OSELTAMIVIR [Concomitant]
     Active Substance: OSELTAMIVIR
     Indication: EVIDENCE BASED TREATMENT
     Dosage: UNK (STOPPED)
     Route: 065
  11. MIDAZOLAM. [Concomitant]
     Active Substance: MIDAZOLAM
     Dosage: 6 MILLIGRAM EVERY 1 HR (AT 12H AND 24H OF HOSPITALISATION)
     Route: 065
  12. PROPOFOL. [Suspect]
     Active Substance: PROPOFOL
     Indication: SEDATION
     Dosage: 200 MILLIGRAM, EVERY 1 HR (AT 6 HOUR OF ADMISSION)
     Route: 042
  13. MIDAZOLAM. [Concomitant]
     Active Substance: MIDAZOLAM
     Indication: PARALYSIS
     Dosage: 5 MILLIGRAM EVRY 1 HR (AT 6H OF ADMISSION)
     Route: 065
  14. MAGNESIUM SULFATE. [Concomitant]
     Active Substance: MAGNESIUM SULFATE
     Indication: STATUS ASTHMATICUS
     Dosage: 2 GRAM, UNK
     Route: 042
  15. CISATRACURIUM. [Concomitant]
     Active Substance: CISATRACURIUM
     Indication: SEDATION
     Dosage: 2.2 MICROGRAM/KILOGRAM EVERY MINUTE (AT 6H TO 12H OF HOSPITALISATION)
     Route: 065
  16. CEFTRIAXONE. [Concomitant]
     Active Substance: CEFTRIAXONE
     Indication: EVIDENCE BASED TREATMENT
     Dosage: UNK (STOPPED)
     Route: 065
  17. ALBUTEROL SULFATE. [Suspect]
     Active Substance: ALBUTEROL SULFATE
     Indication: STATUS ASTHMATICUS
     Dosage: 100 MICROGRAM, UNK (HE RECEIVED SALBUTAMOL INHALER 100 MCG/PUFF VIA VENTILATOR^S INSPIRATORY CIRCUIT
     Route: 055

REACTIONS (2)
  - Lactic acidosis [Recovered/Resolved]
  - Toxicity to various agents [Unknown]
